FAERS Safety Report 8919929 (Version 1)
Quarter: 2012Q4

REPORT INFORMATION
  Report Type: 
  Country: US (occurrence: US)
  Receive Date: 20121121
  Receipt Date: 20121121
  Transmission Date: 20130627
  Serious: No
  Sender: FDA-Public Use
  Company Number: US-BAYER-2012-120879

PATIENT
  Age: 82 Year
  Sex: Female
  Weight: 47 kg

DRUGS (3)
  1. ALEVE CAPLET/TABLET,MIDOL EXTENDED RELIEF CAPLET [Suspect]
     Indication: ARTHRITIS
     Dosage: 1 DF, BID
     Route: 048
     Dates: start: 20121031
  2. METFORMIN [Concomitant]
  3. KIDNEY PILL [Concomitant]

REACTIONS (1)
  - Oedema peripheral [Not Recovered/Not Resolved]
